FAERS Safety Report 7372099-4 (Version None)
Quarter: 2011Q1

REPORT INFORMATION
  Report Type: 
  Country: None (occurrence: None)
  Receive Date: 20110324
  Receipt Date: 20110322
  Transmission Date: 20110831
  Serious: Yes (Death)
  Sender: FDA-Public Use
  Company Number: FR-ROCHE-766968

PATIENT
  Sex: Female

DRUGS (11)
  1. KARDEGIC [Suspect]
     Route: 048
     Dates: start: 20090101, end: 20110107
  2. FLUOXETINE [Suspect]
     Indication: DEPRESSION
     Dosage: DRUG REPORTED AS: FLUOXETINE (CHLORHYDRATE DE)
     Route: 048
     Dates: start: 20101201, end: 20110107
  3. METFORMIN HCL [Suspect]
     Route: 048
     Dates: start: 20090101, end: 20110107
  4. PRAVASTATIN [Suspect]
     Dosage: DRUG REPORTED AS: PRAVASTATINE SODIC
     Route: 048
     Dates: start: 20090101, end: 20110107
  5. OMEPRAZOLE [Suspect]
     Route: 048
     Dates: start: 20090101, end: 20110107
  6. TARCEVA [Suspect]
     Route: 048
     Dates: start: 20101203, end: 20110107
  7. KLIPAL [Suspect]
     Dosage: DRUG REPORTED AS: KLIPAL CODEINE 600 MG/50 MG
     Route: 048
     Dates: start: 19900101, end: 20110107
  8. VALIUM [Suspect]
     Route: 048
     Dates: start: 19900101, end: 20110107
  9. FUROSEMIDE [Suspect]
     Route: 048
     Dates: start: 20090101, end: 20110107
  10. BISOPROLOL [Suspect]
     Route: 048
     Dates: start: 20090101, end: 20110107
  11. TIMOLOL MALEATE [Suspect]
     Indication: GLAUCOMA
     Dosage: TIMOLOL (MALEATE DE)
     Route: 047
     Dates: start: 19900101, end: 20110107

REACTIONS (1)
  - SUDDEN DEATH [None]
